FAERS Safety Report 21758012 (Version 2)
Quarter: 2023Q1

REPORT INFORMATION
  Report Type: Spontaneous
  Country: US (occurrence: US)
  Receive Date: 20221221
  Receipt Date: 20230106
  Transmission Date: 20230418
  Serious: Yes (Hospitalization)
  Sender: FDA-Public Use
  Company Number: US-BIOVITRUM-2022US14997

PATIENT
  Sex: Male
  Weight: 9 kg

DRUGS (13)
  1. SYNAGIS [Suspect]
     Active Substance: PALIVIZUMAB
     Indication: Premature baby
  2. SYNAGIS [Suspect]
     Active Substance: PALIVIZUMAB
     Indication: Bronchopulmonary dysplasia
  3. SYNAGIS [Suspect]
     Active Substance: PALIVIZUMAB
     Indication: Hypertrophic cardiomyopathy
  4. REVATIO [Concomitant]
     Active Substance: SILDENAFIL CITRATE
  5. PROPRANOLOL HYDROCHLORIDE [Concomitant]
     Active Substance: PROPRANOLOL HYDROCHLORIDE
  6. SODIUM CHLORIDE;WATER [Concomitant]
  7. SYNAGIS [Suspect]
     Active Substance: PALIVIZUMAB
     Indication: Acute respiratory failure
  8. TYLENOL [Concomitant]
     Active Substance: ACETAMINOPHEN
  9. SYNAGIS [Suspect]
     Active Substance: PALIVIZUMAB
     Indication: Coarctation of the aorta
  10. SYNAGIS [Suspect]
     Active Substance: PALIVIZUMAB
     Indication: Cardiomegaly
  11. SYNAGIS [Suspect]
     Active Substance: PALIVIZUMAB
     Indication: Hypercapnia
  12. SYNAGIS [Suspect]
     Active Substance: PALIVIZUMAB
     Indication: Pulmonary hypertension
  13. FLOVENT HFA [Concomitant]
     Active Substance: FLUTICASONE PROPIONATE

REACTIONS (3)
  - Sleep apnoea syndrome [Unknown]
  - Condition aggravated [Unknown]
  - Rash macular [Unknown]
